FAERS Safety Report 17664009 (Version 2)
Quarter: 2022Q1

REPORT INFORMATION
  Report Type: Spontaneous
  Country: IT (occurrence: IT)
  Receive Date: 20200414
  Receipt Date: 20220307
  Transmission Date: 20220423
  Serious: Yes (Congenital Anomaly, Other)
  Sender: FDA-Public Use
  Company Number: IT-TEVA-2020-IT-1222739

PATIENT
  Age: 59 Year
  Sex: Male

DRUGS (15)
  1. FLUDARABINE [Suspect]
     Active Substance: FLUDARABINE PHOSPHATE
     Indication: Acute myeloid leukaemia
     Dosage: 60 MILLIGRAM DAILY; MITO-FLAG INDUCTION SCHEME; FLUDARABINE ON DAYS 1-5
     Route: 065
  2. FLUDARABINE [Suspect]
     Active Substance: FLUDARABINE PHOSPHATE
     Indication: Acute myeloid leukaemia
     Dosage: TWO CYCLES OF CONSOLIDATION CHEMOTHERAPY (MITO-FLAG SCHEME)
     Route: 065
  3. FLUDARABINE [Suspect]
     Active Substance: FLUDARABINE PHOSPHATE
     Indication: Acute myeloid leukaemia
     Dosage: TBF REDUCED-INTENSITY CONDITIONING REGIMEN; FLUDARABINE ON DAY -3
     Route: 065
     Dates: start: 201803
  4. METHOTREXATE [Suspect]
     Active Substance: METHOTREXATE
     Indication: Prophylaxis against graft versus host disease
     Dosage: ON DAY 1
     Route: 065
     Dates: start: 201803
  5. LENALIDOMIDE [Suspect]
     Active Substance: LENALIDOMIDE
     Indication: Myelodysplastic syndrome
     Route: 065
  6. CYTARABINE [Suspect]
     Active Substance: CYTARABINE
     Indication: Acute myeloid leukaemia
     Dosage: 4 GRAM DAILY; MITO-FLAG INDUCTION SCHEME; CYTARABINE 2 G OVER 3 H EVERY 12 H ON DAY 1 - 5
     Route: 065
  7. CYTARABINE [Suspect]
     Active Substance: CYTARABINE
     Indication: Acute myeloid leukaemia
     Dosage: TWO CYCLES OF CONSOLIDATION CHEMOTHERAPY (MITO-FLAG SCHEME)
     Route: 065
  8. MITOXANTRONE [Suspect]
     Active Substance: MITOXANTRONE HYDROCHLORIDE
     Indication: Acute myeloid leukaemia
     Dosage: 12 MILLIGRAM DAILY; MITO-FLAG INDUCTION SCHEME; MITOXANTRONE ON DAYS 1, 3 AND 5
     Route: 065
  9. MITOXANTRONE [Suspect]
     Active Substance: MITOXANTRONE HYDROCHLORIDE
     Indication: Acute myeloid leukaemia
     Dosage: TWO CYCLES OF CONSOLIDATION CHEMOTHERAPY (MITO-FLAG SCHEME)
     Route: 065
  10. THIOTEPA [Suspect]
     Active Substance: THIOTEPA
     Indication: Acute myeloid leukaemia
     Dosage: TBF REDUCED-INTENSITY CONDITIONING REGIMEN ; THIOTEPA ON DAY -6
     Route: 065
     Dates: start: 201803
  11. BUSULFAN [Suspect]
     Active Substance: BUSULFAN
     Indication: Acute myeloid leukaemia
     Dosage: 240 MILLIGRAM DAILY; TBF REDUCED-INTENSITY CONDITIONING REGIMEN; BUSULFAN ON DAYS -5 AND -4
     Route: 065
     Dates: start: 201803
  12. LAPINE T-LYMPHOCYTE IMMUNE GLOBULIN [Suspect]
     Active Substance: LAPINE T-LYMPHOCYTE IMMUNE GLOBULIN
     Indication: Prophylaxis against graft versus host disease
     Dosage: ON DAYS -3,-2,-1, RABBIT-DERIVED ANTI-THYMOCYTE GLOBULINS
     Route: 050
     Dates: start: 201803
  13. CYCLOSPORINE [Suspect]
     Active Substance: CYCLOSPORINE
     Indication: Prophylaxis against graft versus host disease
     Dosage: STARTED FROM DAY - 1
     Route: 050
     Dates: start: 201803
  14. MICAFUNGIN [Concomitant]
     Active Substance: MICAFUNGIN
     Indication: Antifungal prophylaxis
     Route: 065
  15. DEFERASIROX [Concomitant]
     Active Substance: DEFERASIROX
     Indication: Chelation therapy
     Dosage: DEFERASIROX WAS STARTED TWO MONTHS BEFORE HSCT AND DEFERASIROX ADMINISTRATION WAS STOPPED DURING ...
     Route: 065
     Dates: end: 201803

REACTIONS (10)
  - Rhinocerebral mucormycosis [Recovered/Resolved]
  - VIth nerve paralysis [Recovered/Resolved]
  - Ophthalmic vein thrombosis [Recovered/Resolved]
  - Cachexia [Recovered/Resolved]
  - Vasogenic cerebral oedema [Recovered/Resolved]
  - Aplasia [Recovered/Resolved]
  - Thrombophlebitis [Recovered/Resolved]
  - Trigeminal neuralgia [Recovered/Resolved]
  - Weight decreased [Recovering/Resolving]
  - Cranial nerve disorder [Recovered/Resolved]

NARRATIVE: CASE EVENT DATE: 20180101
